FAERS Safety Report 4557671-9 (Version None)
Quarter: 2005Q1

REPORT INFORMATION
  Report Type: 
  Country: None (occurrence: None)
  Receive Date: 20050118
  Receipt Date: 20050103
  Transmission Date: 20050727
  Serious: No
  Sender: FDA-Public Use
  Company Number: US014512

PATIENT
  Age: 22 Month
  Sex: Male

DRUGS (1)
  1. ACTIQ [Suspect]
     Dosage: 1600 UG ONCE BUCCAL
     Route: 002
     Dates: start: 20041231, end: 20041231

REACTIONS (1)
  - ACCIDENTAL EXPOSURE [None]
